FAERS Safety Report 6434619-3 (Version None)
Quarter: 2009Q4

REPORT INFORMATION
  Report Type: 
  Country: None (occurrence: None)
  Receive Date: 20091110
  Receipt Date: 20091103
  Transmission Date: 20100525
  Serious: Yes (Other)
  Sender: FDA-Public Use
  Company Number: B0600484A

PATIENT
  Age: 59 Year
  Sex: Male
  Weight: 75 kg

DRUGS (2)
  1. DIGOXIN [Suspect]
     Indication: CARDIAC FAILURE
  2. SPIRONOLACTONE [Suspect]
     Indication: CARDIAC FAILURE

REACTIONS (14)
  - ANGER [None]
  - BLOOD OESTROGEN INCREASED [None]
  - BLOOD PROLACTIN INCREASED [None]
  - CONDITION AGGRAVATED [None]
  - DEPRESSION [None]
  - ERECTILE DYSFUNCTION [None]
  - GENDER IDENTITY DISORDER [None]
  - GRIEF REACTION [None]
  - GYNAECOMASTIA [None]
  - HOMOSEXUALITY [None]
  - OEDEMA [None]
  - SOCIAL AVOIDANT BEHAVIOUR [None]
  - SUICIDAL IDEATION [None]
  - WEIGHT INCREASED [None]
